FAERS Safety Report 4475221-2 (Version None)
Quarter: 2004Q4

REPORT INFORMATION
  Report Type: 
  Country: None (occurrence: None)
  Receive Date: 20041013
  Receipt Date: 20041013
  Transmission Date: 20050328
  Serious: Yes (Hospitalization)
  Sender: FDA-Public Use
  Company Number: None

PATIENT
  Age: 67 Year
  Sex: Female

DRUGS (12)
  1. PREDNISONE [Suspect]
     Indication: CHRONIC OBSTRUCTIVE AIRWAYS DISEASE EXACERBATED
     Dosage: TAPER ORAL
     Route: 048
  2. IBUPROFEN [Suspect]
     Indication: PAIN
     Dosage: 800 MG AS NEEDED ORAL
     Route: 048
  3. AZITHROMYCIN [Concomitant]
  4. METFORMIN HCL [Concomitant]
  5. ZOLPIDEM TARTRATE [Concomitant]
  6. ALBUTEROL [Concomitant]
  7. ADVAIR DISKUS 100/50 [Concomitant]
  8. LEVOTHYROXINE SODIUM [Concomitant]
  9. MONTELUKAST [Concomitant]
  10. HYDROCHLOROTHIAZIDE [Concomitant]
  11. METOPROLOL TARTRATE [Concomitant]
  12. POTASSIUM CHLORIDE [Concomitant]

REACTIONS (10)
  - ASTHENIA [None]
  - DECREASED APPETITE [None]
  - FAECAL OCCULT BLOOD POSITIVE [None]
  - GASTRIC ULCER [None]
  - HAEMATOCRIT DECREASED [None]
  - HAEMOGLOBIN DECREASED [None]
  - MELAENA [None]
  - NAUSEA [None]
  - ORTHOSTATIC HYPOTENSION [None]
  - VOMITING [None]
